FAERS Safety Report 15900131 (Version 1)
Quarter: 2019Q1

REPORT INFORMATION
  Report Type: Spontaneous
  Country: TW (occurrence: TW)
  Receive Date: 20190201
  Receipt Date: 20190201
  Transmission Date: 20190417
  Serious: Yes (Death, Other)
  Sender: FDA-Public Use
  Company Number: TW-PFIZER INC-2018300131

PATIENT
  Age: 66 Year
  Sex: Female

DRUGS (2)
  1. SUTENT [Suspect]
     Active Substance: SUNITINIB MALATE
     Dosage: 25 MG, 1X/DAY
     Dates: start: 20181003
  2. SUTENT [Suspect]
     Active Substance: SUNITINIB MALATE
     Indication: GASTROINTESTINAL STROMAL TUMOUR
     Dosage: 37.5 MG, 1X/DAY
     Dates: start: 20180706, end: 2018

REACTIONS (10)
  - Blood pressure increased [Recovered/Resolved]
  - Fatigue [Not Recovered/Not Resolved]
  - Dysphonia [Unknown]
  - Gingival swelling [Recovered/Resolved]
  - Death [Fatal]
  - Dry mouth [Recovering/Resolving]
  - Condition aggravated [Recovered/Resolved]
  - Asthenia [Unknown]
  - Neoplasm progression [Unknown]
  - Palmar-plantar erythrodysaesthesia syndrome [Recovering/Resolving]

NARRATIVE: CASE EVENT DATE: 2018
